FAERS Safety Report 4726059-X (Version None)
Quarter: 2005Q3

REPORT INFORMATION
  Report Type: 
  Country: None (occurrence: None)
  Receive Date: 20050725
  Receipt Date: 20050711
  Transmission Date: 20060218
  Serious: Yes (Other)
  Sender: FDA-Public Use
  Company Number: 6015970

PATIENT
  Age: 82 Year
  Sex: Male

DRUGS (3)
  1. AMIODURA [Suspect]
     Dosage: 200, 0000 MG (200  MG, 1 IN 1 D
     Dates: start: 20041201
  2. METOPROLOL SUCCINATE [Concomitant]
  3. MARCUMAR [Concomitant]

REACTIONS (2)
  - BLOOD PRESSURE INCREASED [None]
  - EPISTAXIS [None]
